FAERS Safety Report 19679465 (Version 1)
Quarter: 2021Q3

REPORT INFORMATION
  Report Type: Spontaneous
  Country: US (occurrence: US)
  Receive Date: 20210809
  Receipt Date: 20210809
  Transmission Date: 20211014
  Serious: No
  Sender: FDA-Public Use
  Company Number: None

PATIENT
  Sex: Female

DRUGS (3)
  1. OZURDEX [Suspect]
     Active Substance: DEXAMETHASONE
     Indication: MACULAR OEDEMA
     Dosage: EYLEA DIRECTIONS INJECT 1 SYRINGR INTRAVITRALLY INTO BPTH EYES EVERY 4 WEEKS?OZURDEX DIRECTIONS: INJECT 1 IMPLANT INTRAVITREALLLY INTO BOTHE EYES  EVERY 90 DAYS
     Dates: start: 20210802
  2. OZURDEX [Suspect]
     Active Substance: DEXAMETHASONE
     Indication: DIABETES MELLITUS
     Dosage: EYLEA DIRECTIONS INJECT 1 SYRINGR INTRAVITRALLY INTO BPTH EYES EVERY 4 WEEKS?OZURDEX DIRECTIONS: INJECT 1 IMPLANT INTRAVITREALLLY INTO BOTHE EYES  EVERY 90 DAYS
     Dates: start: 20210802
  3. OZURDEX [Suspect]
     Active Substance: DEXAMETHASONE
     Indication: DIABETIC RETINOPATHY
     Dosage: EYLEA DIRECTIONS INJECT 1 SYRINGR INTRAVITRALLY INTO BPTH EYES EVERY 4 WEEKS?OZURDEX DIRECTIONS: INJECT 1 IMPLANT INTRAVITREALLLY INTO BOTHE EYES  EVERY 90 DAYS
     Dates: start: 20210802

REACTIONS (1)
  - Surgery [None]
